FAERS Safety Report 7683986-1 (Version None)
Quarter: 2011Q3

REPORT INFORMATION
  Report Type: 
  Country: None (occurrence: None)
  Receive Date: 20110815
  Receipt Date: 20110804
  Transmission Date: 20111222
  Serious: Yes (Hospitalization)
  Sender: FDA-Public Use
  Company Number: GB-BAXTER-2011BH015895

PATIENT
  Sex: Male

DRUGS (4)
  1. EXTRANEAL [Suspect]
     Indication: PERITONEAL DIALYSIS
     Route: 033
     Dates: start: 20110101
  2. EXTRANEAL [Suspect]
     Route: 033
     Dates: start: 20110201
  3. PHYSIOSOL IN PLASTIC CONTAINER [Suspect]
     Indication: PERITONEAL DIALYSIS
     Route: 033
  4. PHYSIOSOL IN PLASTIC CONTAINER [Suspect]
     Route: 033
     Dates: start: 20110201

REACTIONS (5)
  - HAEMOPTYSIS [None]
  - PLEURAL EFFUSION [None]
  - CATHETER SITE PAIN [None]
  - PNEUMOTHORAX [None]
  - ABDOMINAL PAIN [None]
